FAERS Safety Report 13690697 (Version 1)
Quarter: 2017Q2

REPORT INFORMATION
  Report Type: Spontaneous
  Country: US (occurrence: US)
  Receive Date: 20170626
  Receipt Date: 20170626
  Transmission Date: 20170830
  Serious: No
  Sender: FDA-Public Use
  Company Number: US-DSJP-DSU-2016-132463

PATIENT
  Sex: Female

DRUGS (1)
  1. WELCHOL [Suspect]
     Active Substance: COLESEVELAM HYDROCHLORIDE
     Indication: GASTROINTESTINAL DISORDER
     Dosage: UNK

REACTIONS (2)
  - No adverse event [Unknown]
  - Off label use [Unknown]
